FAERS Safety Report 6483514-2 (Version None)
Quarter: 2009Q4

REPORT INFORMATION
  Report Type: 
  Country: None (occurrence: None)
  Receive Date: 20091209
  Receipt Date: 20091203
  Transmission Date: 20100525
  Serious: Yes (Death, Other)
  Sender: FDA-Public Use
  Company Number: HQWYE451615JUN04

PATIENT
  Sex: Female
  Weight: 90.8 kg

DRUGS (5)
  1. PREMPRO [Suspect]
  2. MEDROXYPROGESTERONE ACETATE [Suspect]
  3. ESTROGEN NOS [Suspect]
  4. PREMARIN [Suspect]
  5. PROVERA [Suspect]

REACTIONS (2)
  - BREAST CANCER [None]
  - MYOCARDIAL INFARCTION [None]
